FAERS Safety Report 19756790 (Version 1)
Quarter: 2021Q3

REPORT INFORMATION
  Report Type: Spontaneous
  Country: US (occurrence: US)
  Receive Date: 20210828
  Receipt Date: 20210828
  Transmission Date: 20211014
  Serious: No
  Sender: FDA-Public Use
  Company Number: US-CELGENEUS-USA-20210805453

PATIENT
  Sex: Female

DRUGS (4)
  1. REVLIMID [Suspect]
     Active Substance: LENALIDOMIDE
     Dosage: 10 MILLIGRAM
     Route: 048
     Dates: start: 202102
  2. REVLIMID [Suspect]
     Active Substance: LENALIDOMIDE
     Dosage: 10 MILLIGRAM
     Route: 048
     Dates: start: 202106
  3. REVLIMID [Suspect]
     Active Substance: LENALIDOMIDE
     Indication: VON WILLEBRAND^S DISEASE
     Dosage: 5 MILLIGRAM
     Route: 048
     Dates: start: 20171009
  4. REVLIMID [Suspect]
     Active Substance: LENALIDOMIDE
     Indication: ARTERIOVENOUS MALFORMATION
     Dosage: 10?15MG
     Route: 048
     Dates: start: 201803

REACTIONS (1)
  - Immune system disorder [Unknown]
